FAERS Safety Report 7288020-3 (Version None)
Quarter: 2011Q1

REPORT INFORMATION
  Report Type: 
  Country: None (occurrence: None)
  Receive Date: 20110211
  Receipt Date: 20110131
  Transmission Date: 20110831
  Serious: Yes (Hospitalization, Other)
  Sender: FDA-Public Use
  Company Number: PHFR2010GB01369

PATIENT
  Sex: Female

DRUGS (1)
  1. CLOZARIL [Suspect]
     Indication: SCHIZOPHRENIA
     Dosage: UNK
     Dates: start: 20030313

REACTIONS (7)
  - VOMITING [None]
  - BARIATRIC GASTRIC BALLOON INSERTION [None]
  - INTESTINAL STENOSIS [None]
  - GASTRIC BYPASS [None]
  - POST PROCEDURAL COMPLICATION [None]
  - OBESITY [None]
  - SLEEP APNOEA SYNDROME [None]
